FAERS Safety Report 20710581 (Version 1)
Quarter: 2022Q2

REPORT INFORMATION
  Report Type: Spontaneous
  Country: US (occurrence: None)
  Receive Date: 20220414
  Receipt Date: 20220414
  Transmission Date: 20220721
  Serious: Yes (Hospitalization)
  Sender: FDA-Public Use
  Company Number: None

PATIENT
  Age: 72 Year
  Sex: Female
  Weight: 98.8 kg

DRUGS (1)
  1. BEBTELOVIMAB [Suspect]
     Active Substance: BEBTELOVIMAB
     Indication: COVID-19
     Dosage: FREQUENCY : ONCE;?
     Route: 041
     Dates: start: 20220407, end: 20220407

REACTIONS (9)
  - Diarrhoea [None]
  - Fall [None]
  - Haematoma [None]
  - Skin laceration [None]
  - Skin weeping [None]
  - Headache [None]
  - Myalgia [None]
  - Computerised tomogram head abnormal [None]
  - Haemorrhage [None]

NARRATIVE: CASE EVENT DATE: 20220409
